FAERS Safety Report 6002209-2 (Version None)
Quarter: 2008Q4

REPORT INFORMATION
  Report Type: 
  Country: None (occurrence: None)
  Receive Date: 20081212
  Receipt Date: 20081202
  Transmission Date: 20090506
  Serious: Yes (Hospitalization)
  Sender: FDA-Public Use
  Company Number: 2008AL012217

PATIENT
  Age: 97 Year
  Sex: Male

DRUGS (1)
  1. DIGOXIN [Suspect]
     Indication: CARDIAC DISORDER
     Dosage: DAILY, PO
     Route: 048

REACTIONS (5)
  - DEAFNESS [None]
  - FALL [None]
  - HALLUCINATION [None]
  - ULCER HAEMORRHAGE [None]
  - VISION BLURRED [None]
